FAERS Safety Report 20147607 (Version 2)
Quarter: 2021Q4

REPORT INFORMATION
  Report Type: Report from Study
  Country: AU (occurrence: AU)
  Receive Date: 20211203
  Receipt Date: 20211210
  Transmission Date: 20220303
  Serious: Yes (Other)
  Sender: FDA-Public Use
  Company Number: AU-BAYER-2021A258025

PATIENT

DRUGS (2)
  1. EYLEA [Suspect]
     Active Substance: AFLIBERCEPT
     Indication: Diabetic retinal oedema
     Dosage: TWO EYLEA INJECTIONS TO OD
     Route: 031
  2. EYLEA [Suspect]
     Active Substance: AFLIBERCEPT
     Dosage: TWO EYLEA INJECTIONS TO OS
     Route: 031

REACTIONS (2)
  - Eye injury [Not Recovered/Not Resolved]
  - Injection site swelling [Not Recovered/Not Resolved]
